FAERS Safety Report 4375629-X (Version None)
Quarter: 2004Q2

REPORT INFORMATION
  Report Type: 
  Country: None (occurrence: None)
  Receive Date: 20040607
  Receipt Date: 20040520
  Transmission Date: 20050107
  Serious: Yes (Hospitalization)
  Sender: FDA-Public Use
  Company Number: 701923

PATIENT
  Age: 66 Year
  Sex: Female
  Weight: 107.9561 kg

DRUGS (9)
  1. AMEVIVE [Suspect]
     Indication: PSORIASIS
     Dosage: 15 MG QW IM
     Route: 030
     Dates: start: 20040302, end: 20040316
  2. HUMALOG [Concomitant]
  3. PAXIL [Concomitant]
  4. ZOCOR [Concomitant]
  5. LASIX [Concomitant]
  6. COREG [Concomitant]
  7. PLAVIX [Concomitant]
  8. ALDACTONE [Concomitant]
  9. HUMULIN [Concomitant]

REACTIONS (1)
  - TRANSIENT ISCHAEMIC ATTACK [None]
